FAERS Safety Report 25667320 (Version 1)
Quarter: 2025Q3

REPORT INFORMATION
  Report Type: Other
  Country: US (occurrence: US)
  Receive Date: 20250811
  Receipt Date: 20250811
  Transmission Date: 20251021
  Serious: Yes (Other)
  Sender: HLS THERAPEUTICS
  Company Number: US-HLS-202500286

PATIENT
  Age: 35 Year
  Sex: Female

DRUGS (2)
  1. CLOZAPINE [Suspect]
     Active Substance: CLOZAPINE
     Indication: Bipolar disorder
     Route: 065
  2. XANAX [Suspect]
     Active Substance: ALPRAZOLAM
     Indication: Bipolar disorder
     Route: 065

REACTIONS (4)
  - Intestinal obstruction [Unknown]
  - Product use in unapproved indication [Unknown]
  - Colorectal adenocarcinoma [Unknown]
  - Metastases to ovary [Unknown]
